FAERS Safety Report 7537033-2 (Version None)
Quarter: 2011Q2

REPORT INFORMATION
  Report Type: 
  Country: None (occurrence: None)
  Receive Date: 20110609
  Receipt Date: 20110527
  Transmission Date: 20111010
  Serious: Yes (Hospitalization)
  Sender: FDA-Public Use
  Company Number: PHHY2011US41184

PATIENT
  Sex: Female
  Weight: 51.7 kg

DRUGS (6)
  1. CYCLIZINE [Concomitant]
  2. PREDNISONE [Concomitant]
  3. RECLAST [Suspect]
     Indication: OSTEOPOROSIS
     Dosage: 5 MG, YEARLY
     Route: 042
     Dates: start: 20110510
  4. PHENERGAN HCL [Concomitant]
  5. LEVOTHYROXINE SODIUM [Concomitant]
  6. CALCIUM CARBONATE [Concomitant]

REACTIONS (5)
  - BLOOD SODIUM DECREASED [None]
  - DYSURIA [None]
  - ASTHENIA [None]
  - INFLUENZA LIKE ILLNESS [None]
  - BLOOD CHLORIDE DECREASED [None]
